FAERS Safety Report 4637754-5 (Version None)
Quarter: 2005Q2

REPORT INFORMATION
  Report Type: 
  Country: None (occurrence: None)
  Receive Date: 20050325
  Receipt Date: 20041129
  Transmission Date: 20051028
  Serious: No
  Sender: FDA-Public Use
  Company Number: USA041184723

PATIENT
  Age: 77 Year
  Sex: Female

DRUGS (2)
  1. FORTEO [Suspect]
     Indication: OSTEOPOROSIS
     Dates: start: 20041109
  2. CALCIUM WITH VITAMIN D [Concomitant]

REACTIONS (2)
  - IRRITABLE BOWEL SYNDROME [None]
  - NAUSEA [None]
